APPROVED DRUG PRODUCT: OMEPRAZOLE AND SODIUM BICARBONATE
Active Ingredient: OMEPRAZOLE; SODIUM BICARBONATE
Strength: 20MG;1.1GM
Dosage Form/Route: CAPSULE;ORAL
Application: A203345 | Product #001
Applicant: ZYDUS WORLDWIDE DMCC
Approved: Mar 16, 2018 | RLD: No | RS: No | Type: OTC